FAERS Safety Report 5163210-4 (Version None)
Quarter: 2006Q4

REPORT INFORMATION
  Report Type: 
  Country: None (occurrence: None)
  Receive Date: 20061121
  Receipt Date: 20061110
  Transmission Date: 20070319
  Serious: Yes (Life-Threatening, Hospitalization)
  Sender: FDA-Public Use
  Company Number: 2006002128

PATIENT
  Age: 73 Year
  Sex: Male
  Weight: 86.7 kg

DRUGS (6)
  1. ERLOTINIB (TABLET) [Suspect]
     Indication: NON-SMALL CELL LUNG CANCER
     Dosage: 100 MG (QD) ORAL
     Route: 048
     Dates: start: 20060628, end: 20061010
  2. BEVACIZUMAB (INJECTION FOR INFUSION) [Suspect]
     Indication: NON-SMALL CELL LUNG CANCER
     Dosage: 1335 MG (Q3W) INTRAVENOUS
     Route: 042
     Dates: start: 20060628, end: 20060920
  3. MEGACE [Concomitant]
  4. DUONEB (SALBUTAMOL) [Concomitant]
  5. PERCOCET [Concomitant]
  6. PROTONIX [Concomitant]

REACTIONS (17)
  - ASTHENIA [None]
  - BLOOD GLUCOSE INCREASED [None]
  - BODY TEMPERATURE DECREASED [None]
  - CEREBRAL ATROPHY [None]
  - CLOSTRIDIUM DIFFICILE COLITIS [None]
  - DIASTOLIC DYSFUNCTION [None]
  - EMPHYSEMA [None]
  - ENCEPHALOPATHY [None]
  - HAEMOGLOBIN DECREASED [None]
  - LUNG NEOPLASM [None]
  - OSTEOARTHRITIS [None]
  - OSTEOPOROSIS [None]
  - PULMONARY HILAR ENLARGEMENT [None]
  - PYREXIA [None]
  - RIB FRACTURE [None]
  - TACHYCARDIA PAROXYSMAL [None]
  - TRICUSPID VALVE INCOMPETENCE [None]
